FAERS Safety Report 10075782 (Version 2)
Quarter: 2014Q2

REPORT INFORMATION
  Report Type: Spontaneous
  Country: DK (occurrence: DK)
  Receive Date: 20140414
  Receipt Date: 20140508
  Transmission Date: 20141212
  Serious: Yes (Hospitalization)
  Sender: FDA-Public Use
  Company Number: DK-ELI_LILLY_AND_COMPANY-DK201404000801

PATIENT
  Age: 74 Year
  Sex: Female

DRUGS (2)
  1. FORSTEO [Suspect]
     Indication: OSTEOPOROSIS
     Dosage: UNK, UNKNOWN
     Route: 058
     Dates: start: 20120814, end: 20140331
  2. FORSTEO [Suspect]
     Dosage: UNK, UNKNOWN
     Route: 058
     Dates: start: 20140407

REACTIONS (2)
  - Overdose [Recovered/Resolved]
  - Nervousness [Recovered/Resolved]
